FAERS Safety Report 24591537 (Version 1)
Quarter: 2024Q4

REPORT INFORMATION
  Report Type: Report from Study
  Country: US (occurrence: US)
  Receive Date: 20241108
  Receipt Date: 20241108
  Transmission Date: 20250115
  Serious: Yes (Hospitalization, Other)
  Sender: ALEXION PHARMACEUTICALS
  Company Number: US-AstraZeneca-CH-00738944A

PATIENT
  Age: 67 Year

DRUGS (1)
  1. ACALABRUTINIB [Suspect]
     Active Substance: ACALABRUTINIB
     Indication: Chronic lymphocytic leukaemia
     Dosage: 100 MILLIGRAM, Q12H

REACTIONS (9)
  - Cardiac disorder [Unknown]
  - Medical diet [Unknown]
  - Pulmonary hypertension [Unknown]
  - Product dose omission issue [Unknown]
  - Dyspnoea [Unknown]
  - Stress [Unknown]
  - Hypersensitivity [Unknown]
  - Cardiac disorder [Unknown]
  - Hypertension [Unknown]
